FAERS Safety Report 6505484-0 (Version None)
Quarter: 2009Q4

REPORT INFORMATION
  Report Type: 
  Country: None (occurrence: None)
  Receive Date: 20091217
  Receipt Date: 20091217
  Transmission Date: 20100525
  Serious: Yes (Other)
  Sender: FDA-Public Use
  Company Number: None

PATIENT
  Age: 89 Year
  Sex: Female
  Weight: 48.9885 kg

DRUGS (2)
  1. FORTICAL [Suspect]
     Indication: COMPRESSION FRACTURE
     Dosage: 1 SPRAY IN ALTERNATING NOSTRIL QD NASAL
     Route: 045
     Dates: start: 20090914, end: 20091216
  2. FORTICAL [Suspect]
     Indication: OSTEOPENIA
     Dosage: 1 SPRAY IN ALTERNATING NOSTRIL QD NASAL
     Route: 045
     Dates: start: 20090914, end: 20091216

REACTIONS (3)
  - NASAL DISCOMFORT [None]
  - PRODUCT SUBSTITUTION ISSUE [None]
  - SNEEZING [None]
